FAERS Safety Report 7214096-5 (Version None)
Quarter: 2010Q4

REPORT INFORMATION
  Report Type: 
  Country: None (occurrence: None)
  Receive Date: 20101227
  Receipt Date: 20101219
  Transmission Date: 20110411
  Serious: Yes (Other)
  Sender: FDA-Public Use
  Company Number: RU-1184478

PATIENT
  Age: 70 Year
  Sex: Male

DRUGS (1)
  1. TRAVATAN [Suspect]
     Dosage: OPHTHALMIC
     Route: 047

REACTIONS (2)
  - CONDITION AGGRAVATED [None]
  - DEAFNESS [None]
